FAERS Safety Report 19164421 (Version 1)
Quarter: 2021Q2

REPORT INFORMATION
  Report Type: Report from Study
  Country: US (occurrence: US)
  Receive Date: 20210421
  Receipt Date: 20210421
  Transmission Date: 20210717
  Serious: No
  Sender: FDA-Public Use
  Company Number: US-GW PHARMA-202104USGW01702

PATIENT

DRUGS (8)
  1. LORAZEPAM. [Concomitant]
     Active Substance: LORAZEPAM
     Indication: LENNOX-GASTAUT SYNDROME
     Dosage: UNK
     Route: 065
  2. EPIDIOLEX [Suspect]
     Active Substance: CANNABIDIOL
     Indication: LENNOX-GASTAUT SYNDROME
     Dosage: 69.3 MG/KG/DAY, 5500 MILLIGRAM, QD (SINCE 4 YEARS)
     Route: 048
     Dates: start: 2017
  3. CLOBAZAM. [Concomitant]
     Active Substance: CLOBAZAM
     Indication: LENNOX-GASTAUT SYNDROME
     Dosage: UNK
     Route: 065
  4. CLONAZEPAM. [Concomitant]
     Active Substance: CLONAZEPAM
     Indication: LENNOX-GASTAUT SYNDROME
     Dosage: UNK
     Route: 065
  5. LEVETIRACETAM. [Concomitant]
     Active Substance: LEVETIRACETAM
     Indication: LENNOX-GASTAUT SYNDROME
     Dosage: UNK
     Route: 065
  6. VALPROATE SODIUM;VALPROIC ACID [Concomitant]
     Active Substance: VALPROIC ACID
     Indication: LENNOX-GASTAUT SYNDROME
     Dosage: UNK
     Route: 065
  7. BRIVARACETAM [Concomitant]
     Active Substance: BRIVARACETAM
     Indication: LENNOX-GASTAUT SYNDROME
     Dosage: UNK
     Route: 065
  8. ZONISAMIDE. [Concomitant]
     Active Substance: ZONISAMIDE
     Indication: LENNOX-GASTAUT SYNDROME
     Dosage: UNK
     Route: 065

REACTIONS (2)
  - Condition aggravated [Unknown]
  - Prescribed overdose [Unknown]
